FAERS Safety Report 13739330 (Version 1)
Quarter: 2017Q3

REPORT INFORMATION
  Report Type: Spontaneous
  Country: BR (occurrence: BR)
  Receive Date: 20170710
  Receipt Date: 20170710
  Transmission Date: 20171127
  Serious: Yes (Other)
  Sender: FDA-Public Use
  Company Number: PHHY2012BR030225

PATIENT
  Age: 70 Year
  Sex: Female

DRUGS (4)
  1. CRESTOR [Concomitant]
     Active Substance: ROSUVASTATIN CALCIUM
     Dosage: 1 DF, DAILY
  2. HYDERGINE [Suspect]
     Active Substance: ERGOLOID MESYLATES
     Indication: LABYRINTHITIS
     Dosage: 1 DF, DAILY
     Dates: start: 1983
  3. LESCOL XL [Suspect]
     Active Substance: FLUVASTATIN SODIUM
     Indication: BLOOD CHOLESTEROL
     Dosage: 1 DF, DAILY
  4. SIMVASTATIN. [Concomitant]
     Active Substance: SIMVASTATIN
     Dosage: 1 DF, DAILY

REACTIONS (7)
  - Renal disorder [Unknown]
  - Abdominal discomfort [Unknown]
  - Dizziness [Unknown]
  - Heart rate decreased [Unknown]
  - Liver disorder [Unknown]
  - Diarrhoea [Unknown]
  - Malaise [Unknown]
